FAERS Safety Report 15207001 (Version 1)
Quarter: 2018Q4

REPORT INFORMATION
  Report Type: Spontaneous
  Country: US (occurrence: US)
  Receive Date: 20180727
  Receipt Date: 20180727
  Transmission Date: 20190204
  Serious: No
  Sender: FDA-Public Use
  Company Number: US-TEVA-2018-US-934021

PATIENT
  Sex: Male

DRUGS (1)
  1. EQ MICONAZOLE - 3 COMBO [Suspect]
     Active Substance: MICONAZOLE
     Route: 065

REACTIONS (2)
  - Drug ineffective [Unknown]
  - Product use issue [Unknown]
